FAERS Safety Report 5307870-3 (Version None)
Quarter: 2007Q2

REPORT INFORMATION
  Report Type: 
  Country: None (occurrence: None)
  Receive Date: 20070420
  Receipt Date: 20070405
  Transmission Date: 20071010
  Serious: Yes (Other)
  Sender: FDA-Public Use
  Company Number: SP1200700151

PATIENT
  Age: 42 Year
  Sex: Female
  Weight: 62.6 kg

DRUGS (5)
  1. AMITIZA [Suspect]
     Indication: IRRITABLE BOWEL SYNDROME
     Dosage: 24 MCG, QD, HS, ORAL
     Route: 048
     Dates: end: 20070324
  2. SYNTHROID [Concomitant]
  3. NEXIUM [Concomitant]
  4. ZELNORM /01470301/ (TEGASEROD) [Concomitant]
  5. CLARITIN [Concomitant]

REACTIONS (2)
  - RIB FRACTURE [None]
  - SYNCOPE [None]
